FAERS Safety Report 6889334-9 (Version None)
Quarter: 2010Q3

REPORT INFORMATION
  Report Type: 
  Country: None (occurrence: None)
  Receive Date: 20100730
  Receipt Date: 20080213
  Transmission Date: 20110219
  Serious: No
  Sender: FDA-Public Use
  Company Number: US-PFIZER INC-2008014257

PATIENT
  Sex: Female

DRUGS (2)
  1. LIPITOR [Suspect]
  2. IRON [Suspect]
     Indication: BLOOD IRON DECREASED

REACTIONS (2)
  - BLOOD CHOLESTEROL INCREASED [None]
  - BLOOD IRON DECREASED [None]
